FAERS Safety Report 7772047-9 (Version None)
Quarter: 2011Q3

REPORT INFORMATION
  Report Type: 
  Country: None (occurrence: None)
  Receive Date: 20110922
  Receipt Date: 20100303
  Transmission Date: 20111222
  Serious: Yes (Other)
  Sender: FDA-Public Use
  Company Number: US-ASTRAZENECA-2009SE21079

PATIENT
  Age: 17733 Day
  Sex: Male

DRUGS (9)
  1. GUAIFENESIN [Concomitant]
     Route: 048
     Dates: start: 20011001
  2. FOSINOPRIL NA [Concomitant]
     Route: 048
     Dates: start: 20020313
  3. NEFAZODONE [Concomitant]
     Route: 048
     Dates: start: 20011121
  4. SEROQUEL [Suspect]
     Route: 048
     Dates: start: 20020122
  5. SIMVASTATIN [Concomitant]
     Route: 048
     Dates: start: 20020313
  6. HYDROXYZINE [Concomitant]
     Route: 048
     Dates: start: 20011004
  7. TRAZODONE HCL [Concomitant]
     Dosage: 37.5-225 MG
     Route: 048
     Dates: start: 20010927
  8. SILDENAFIL CITRATE [Concomitant]
     Dosage: TAKE ONE-HALF AS NEEDED HALF HOUR BEFORE SEXUAL ACTIVITY
     Route: 048
     Dates: start: 20020313
  9. THIAMINE HCL [Concomitant]
     Route: 048
     Dates: start: 20011004

REACTIONS (2)
  - ERECTILE DYSFUNCTION [None]
  - TYPE 2 DIABETES MELLITUS [None]
